FAERS Safety Report 9486406 (Version 4)
Quarter: 2013Q4

REPORT INFORMATION
  Report Type: Spontaneous
  Country: US (occurrence: US)
  Receive Date: 20130829
  Receipt Date: 20131226
  Transmission Date: 20140711
  Serious: No
  Sender: FDA-Public Use
  Company Number: US-PFIZER INC-2013249456

PATIENT
  Age: 56 Year
  Sex: Female
  Weight: 81.63 kg

DRUGS (7)
  1. NEURONTIN [Suspect]
     Indication: NEURALGIA
     Dosage: 300 MG, 4X/DAY
     Dates: start: 2013, end: 2013
  2. GABAPENTIN [Suspect]
     Indication: NEURALGIA
     Dosage: 300 MG, 4X/DAY
     Dates: start: 2013, end: 2013
  3. LYRICA [Suspect]
     Indication: PAIN
     Dosage: UNK
  4. LYRICA [Suspect]
     Dosage: 300 MG, 1X/DAY
     Dates: end: 20131223
  5. VALACICLOVIR [Concomitant]
     Dosage: UNK
  6. OMEGA 3 [Concomitant]
     Dosage: UNK
  7. ACETAMINOPHEN W/HYDROCODONE BITARTRATE [Concomitant]
     Dosage: ACETAMINOPHEN (500), HYDROXYCODONE (75)

REACTIONS (4)
  - Drug ineffective [Unknown]
  - Drug effect incomplete [Unknown]
  - Feeling abnormal [Unknown]
  - Pain [Unknown]
